FAERS Safety Report 21690230 (Version 1)
Quarter: 2022Q4

REPORT INFORMATION
  Report Type: Spontaneous
  Country: US (occurrence: US)
  Receive Date: 20221206
  Receipt Date: 20221206
  Transmission Date: 20230112
  Serious: No
  Sender: FDA-Public Use
  Company Number: US-BRAINTREE LABORATORIES, INC.-2022BTE00708

PATIENT
  Age: 69 Year
  Sex: Female
  Weight: 62.585 kg

DRUGS (1)
  1. SUTAB [Suspect]
     Active Substance: MAGNESIUM SULFATE\POTASSIUM CHLORIDE\SODIUM SULFATE
     Indication: Colonoscopy
     Dosage: 1 X 12 TABLETS, 1X
     Dates: start: 20220816, end: 20220816

REACTIONS (6)
  - Palpitations [Recovered/Resolved]
  - Feeling abnormal [Recovered/Resolved]
  - Pallor [Recovered/Resolved]
  - Presyncope [Recovered/Resolved]
  - Asthenia [Recovered/Resolved]
  - Nausea [Recovered/Resolved]

NARRATIVE: CASE EVENT DATE: 20220816
